FAERS Safety Report 12699166 (Version 2)
Quarter: 2016Q3

REPORT INFORMATION
  Report Type: Report from Study
  Country: US (occurrence: US)
  Receive Date: 20160830
  Receipt Date: 20160906
  Transmission Date: 20161109
  Serious: Yes (Death, Hospitalization, Other)
  Sender: FDA-Public Use
  Company Number: US-BRISTOL-MYERS SQUIBB COMPANY-BMS-2016-065442

PATIENT
  Age: 68 Year
  Sex: Male
  Weight: 114 kg

DRUGS (2)
  1. INCB24360 [Suspect]
     Active Substance: EPACADOSTAT
     Indication: GLIOBLASTOMA
     Dosage: 100 MG, BID
     Route: 048
     Dates: start: 20160325, end: 20160516
  2. NIVOLUMAB [Suspect]
     Active Substance: NIVOLUMAB
     Indication: GLIOBLASTOMA
     Dosage: 240 MG, Q2WK
     Route: 042
     Dates: start: 20160325, end: 20160516

REACTIONS (4)
  - Malignant neoplasm progression [Fatal]
  - Encephalopathy [Not Recovered/Not Resolved]
  - Mental status changes [Not Recovered/Not Resolved]
  - Urinary tract infection [Recovered/Resolved with Sequelae]

NARRATIVE: CASE EVENT DATE: 20160610
